FAERS Safety Report 6452046-X (Version None)
Quarter: 2009Q4

REPORT INFORMATION
  Report Type: 
  Country: None (occurrence: None)
  Receive Date: 20091123
  Receipt Date: 20091008
  Transmission Date: 20100525
  Serious: Yes (Hospitalization)
  Sender: FDA-Public Use
  Company Number: US-AMGEN-TCS345499

PATIENT
  Sex: Female
  Weight: 119.9 kg

DRUGS (3)
  1. ENBREL [Suspect]
     Indication: SPONDYLOARTHROPATHY
     Route: 058
     Dates: start: 20080101
  2. ENBREL [Suspect]
     Indication: DRUG USE FOR UNKNOWN INDICATION
  3. METHOTREXATE [Concomitant]
     Route: 048

REACTIONS (3)
  - PAIN IN EXTREMITY [None]
  - SPONDYLOARTHROPATHY [None]
  - TOOTH IMPACTED [None]
